FAERS Safety Report 19322453 (Version 2)
Quarter: 2021Q2

REPORT INFORMATION
  Report Type: Report from Study
  Country: CA (occurrence: CA)
  Receive Date: 20210528
  Receipt Date: 20210609
  Transmission Date: 20210717
  Serious: Yes (Death)
  Sender: FDA-Public Use
  Company Number: CA-REGENERON PHARMACEUTICALS, INC.-2021-53309

PATIENT

DRUGS (3)
  1. EYLEA [Suspect]
     Active Substance: AFLIBERCEPT
     Indication: NEOVASCULAR AGE-RELATED MACULAR DEGENERATION
     Dosage: UNKNOWN TOTAL NUMBER OF DOSES OF EYLEA
  2. EYLEA [Suspect]
     Active Substance: AFLIBERCEPT
     Dosage: LAST DOSE ADMINISTERED
     Dates: start: 20210428, end: 20210428
  3. EYLEA [Suspect]
     Active Substance: AFLIBERCEPT
     Dosage: UNK; HAS BEEN HAVING INJECTION FOR YEARS, MONTHLY
     Dates: start: 2014

REACTIONS (1)
  - Choking [Fatal]

NARRATIVE: CASE EVENT DATE: 20210512
